FAERS Safety Report 6354914-6 (Version None)
Quarter: 2009Q3

REPORT INFORMATION
  Report Type: 
  Country: None (occurrence: None)
  Receive Date: 20090914
  Receipt Date: 20090911
  Transmission Date: 20100115
  Serious: Yes (Hospitalization)
  Sender: FDA-Public Use
  Company Number: A0805836A

PATIENT
  Age: 38 Year
  Sex: Male

DRUGS (2)
  1. ALLI [Suspect]
     Indication: DRUG USE FOR UNKNOWN INDICATION
     Route: 048
     Dates: start: 20081101, end: 20090804
  2. ALBUTEROL [Concomitant]

REACTIONS (5)
  - ABDOMINAL PAIN LOWER [None]
  - DIARRHOEA [None]
  - DIVERTICULITIS [None]
  - FAECES DISCOLOURED [None]
  - GASTROINTESTINAL DISORDER [None]
